FAERS Safety Report 10230093 (Version 1)
Quarter: 2014Q2

REPORT INFORMATION
  Report Type: Spontaneous
  Country: FR (occurrence: None)
  Receive Date: 20140609
  Receipt Date: 20140609
  Transmission Date: 20141212
  Serious: Yes (Other)
  Sender: FDA-Public Use
  Company Number: 2014151024

PATIENT
  Age: 20 Year
  Sex: Female

DRUGS (6)
  1. FRAGMINE [Suspect]
     Route: 058
     Dates: start: 20140511
  2. AUGMENTIN (AMOXICILLIN TRIHYDRATE, CLAVULANATE POTASSIUM) [Suspect]
     Dosage: 1 GRAM TID IV
     Dates: start: 20140510, end: 20140513
  3. OFLOCET (OFLOXACIN) [Suspect]
     Route: 042
     Dates: start: 20140510, end: 20140513
  4. METRONIDAZOLE (METRONIDAZOLE) [Suspect]
     Route: 042
     Dates: start: 20140510, end: 20140515
  5. PARACETAMOL (PARACETAMOL) [Suspect]
     Route: 042
     Dates: start: 20140510, end: 20140515
  6. PROFENID (KETOPROFEN) [Suspect]
     Dosage: SINGLE
     Route: 042
     Dates: start: 20140510, end: 20140510

REACTIONS (1)
  - Cholestasis [None]
